FAERS Safety Report 6671288-1 (Version None)
Quarter: 2010Q2

REPORT INFORMATION
  Report Type: 
  Country: None (occurrence: None)
  Receive Date: 20100407
  Receipt Date: 20100330
  Transmission Date: 20101027
  Serious: Yes (Other)
  Sender: FDA-Public Use
  Company Number: US-ROCHE-695024

PATIENT
  Age: 5 Year
  Sex: Male

DRUGS (1)
  1. AVASTIN [Suspect]
     Indication: GLIOMA
     Dosage: DOSE, FREQUENCY UNSPECIFIED.
     Route: 065
     Dates: start: 20090601

REACTIONS (1)
  - CHONDROPATHY [None]
